FAERS Safety Report 9164399 (Version 1)
Quarter: 2013Q1

REPORT INFORMATION
  Report Type: Spontaneous
  Country: FR (occurrence: FR)
  Receive Date: 20130315
  Receipt Date: 20130315
  Transmission Date: 20140127
  Serious: Yes (Hospitalization)
  Sender: FDA-Public Use
  Company Number: FR-009507513-1303FRA002392

PATIENT
  Age: 50 Year
  Sex: Male

DRUGS (11)
  1. REBETOL [Suspect]
     Indication: HEPATITIS C
     Dosage: UNK
     Route: 048
     Dates: start: 2001, end: 2001
  2. REBETOL [Suspect]
     Dosage: UNK
     Route: 048
     Dates: start: 2007
  3. RIBAVIRIN [Suspect]
     Indication: HEPATITIS C
     Dosage: UNK
     Route: 048
     Dates: start: 1997, end: 1997
  4. INTRONA [Suspect]
     Indication: HEPATITIS C
     Dosage: UNK
     Route: 058
     Dates: start: 2001, end: 2001
  5. INTERFERON (UNSPECIFIED) [Suspect]
     Indication: HEPATITIS C
     Dosage: UNK
     Route: 058
     Dates: start: 1996, end: 1997
  6. PEGASYS [Suspect]
     Indication: HEPATITIS C
     Dosage: UNK
     Route: 058
     Dates: start: 200506, end: 200512
  7. LERCAN [Concomitant]
     Dosage: 1 DF, QD
  8. CLARITYNE [Concomitant]
     Dosage: 1 DF, QD
  9. AVLOCARDYL [Concomitant]
     Dosage: 1 DF, QD
  10. GLUCOR [Concomitant]
     Dosage: 1 DF, TID
  11. KARDEGIC [Concomitant]
     Dosage: 1 DF, QD

REACTIONS (1)
  - Pulmonary arterial hypertension [Not Recovered/Not Resolved]
